FAERS Safety Report 6806982-2 (Version None)
Quarter: 2010Q2

REPORT INFORMATION
  Report Type: 
  Country: None (occurrence: None)
  Receive Date: 20100629
  Receipt Date: 20080610
  Transmission Date: 20101027
  Serious: No
  Sender: FDA-Public Use
  Company Number: US-PFIZER INC-2008049089

PATIENT
  Sex: Male
  Weight: 120.5 kg

DRUGS (8)
  1. VIAGRA [Suspect]
     Indication: ERECTILE DYSFUNCTION
     Route: 048
     Dates: start: 20070101
  2. METFORMIN HCL [Concomitant]
  3. GLYBURIDE [Concomitant]
  4. IMPRIL [Concomitant]
  5. GLIMEPIRIDE [Concomitant]
  6. HYDROCHLOROTHIAZIDE [Concomitant]
  7. LOVASTATIN [Concomitant]
  8. METOPROLOL [Concomitant]

REACTIONS (2)
  - HEADACHE [None]
  - UNEVALUABLE EVENT [None]
